FAERS Safety Report 4490481-X (Version None)
Quarter: 2004Q4

REPORT INFORMATION
  Report Type: 
  Country: None (occurrence: None)
  Receive Date: 20041102
  Receipt Date: 20041025
  Transmission Date: 20050328
  Serious: Yes (Hospitalization)
  Sender: FDA-Public Use
  Company Number: JP-BRISTOL-MYERS SQUIBB COMPANY-12742631

PATIENT
  Age: 72 Year
  Sex: Male
  Weight: 49 kg

DRUGS (5)
  1. ATENOLOL [Suspect]
     Dosage: DISCONTINUED UP TO DAY OF SURGERY
  2. CILOSTAZOL [Interacting]
     Dosage: DISCONTINUED 5 DAYS PRIOR TO SURGERY
  3. AMLODIPINE [Concomitant]
     Dosage: DISCONTINUED UP TO DAY OF SURGERY
  4. DOXAZOSIN [Concomitant]
     Dosage: DISCONTINUED UP TO DAY OF SURGERY
  5. INSULIN [Concomitant]
     Dosage: 5 UNITS 3 TIMES DAILY; DISCONTINUED ON DAY OF OPERATION

REACTIONS (4)
  - BRADYCARDIA [None]
  - CARDIAC ARREST [None]
  - DRUG INTERACTION [None]
  - DRUG WITHDRAWAL SYNDROME [None]
